FAERS Safety Report 7234800-X (Version None)
Quarter: 2011Q1

REPORT INFORMATION
  Report Type: 
  Country: None (occurrence: None)
  Receive Date: 20110114
  Receipt Date: 20110114
  Transmission Date: 20110831
  Serious: Yes (Hospitalization)
  Sender: FDA-Public Use
  Company Number: None

PATIENT
  Age: 61 Year
  Sex: Male

DRUGS (1)
  1. IBUPROFEN [Suspect]
     Indication: PAIN
     Dates: start: 20100603, end: 20101005

REACTIONS (1)
  - GASTRIC HAEMORRHAGE [None]
